FAERS Safety Report 10459735 (Version 1)
Quarter: 2014Q3

REPORT INFORMATION
  Report Type: Spontaneous
  Country: US (occurrence: US)
  Receive Date: 20140917
  Receipt Date: 20140917
  Transmission Date: 20150326
  Serious: Yes (Hospitalization)
  Sender: FDA-Public Use
  Company Number: US-GLAXOSMITHKLINE-A1088470A

PATIENT
  Age: 57 Year
  Sex: Female

DRUGS (4)
  1. ALBUTEROL INHALER [Concomitant]
     Active Substance: ALBUTEROL
  2. ADVAIR HFA [Suspect]
     Active Substance: FLUTICASONE PROPIONATE\SALMETEROL XINAFOATE
     Indication: ASTHMA
     Dosage: 1PUFF TWICE PER DAY
     Route: 055
  3. UNSPECIFIED MEDICATIONS [Concomitant]
     Active Substance: UNSPECIFIED INGREDIENT
  4. INJECTION [Concomitant]

REACTIONS (7)
  - Spinal operation [Unknown]
  - Peripheral swelling [Not Recovered/Not Resolved]
  - Spinal fusion surgery [Unknown]
  - Disability [Unknown]
  - Skin discolouration [Not Recovered/Not Resolved]
  - Carpal tunnel syndrome [Unknown]
  - Accident at work [Unknown]

NARRATIVE: CASE EVENT DATE: 20130606
